FAERS Safety Report 17781468 (Version 1)
Quarter: 2020Q2

REPORT INFORMATION
  Report Type: Spontaneous
  Country: US (occurrence: US)
  Receive Date: 20200514
  Receipt Date: 20200514
  Transmission Date: 20200714
  Serious: No
  Sender: FDA-Public Use
  Company Number: US-BION-008353

PATIENT

DRUGS (1)
  1. BIONPHARMA^S IBUPROFEN 200 MG SOFTGELS [Suspect]
     Active Substance: IBUPROFEN
     Indication: MIGRAINE
     Dosage: STRENGTH: 200 MG

REACTIONS (1)
  - Drug ineffective [Not Recovered/Not Resolved]
